FAERS Safety Report 4471462-9 (Version None)
Quarter: 2004Q4

REPORT INFORMATION
  Report Type: 
  Country: None (occurrence: None)
  Receive Date: 20041007
  Receipt Date: 20041007
  Transmission Date: 20050328
  Serious: Yes (Other)
  Sender: FDA-Public Use
  Company Number: None

PATIENT
  Age: 54 Year
  Sex: Female
  Weight: 64.4108 kg

DRUGS (1)
  1. SYNTHROID [Suspect]
     Indication: THYROID DISORDER
     Dosage: TAKE ONE DAILY

REACTIONS (3)
  - DIZZINESS [None]
  - POST PROCEDURAL COMPLICATION [None]
  - THYROID FUNCTION TEST ABNORMAL [None]
